FAERS Safety Report 26020566 (Version 1)
Quarter: 2025Q4

REPORT INFORMATION
  Report Type: Spontaneous
  Country: US (occurrence: None)
  Receive Date: 20251107
  Receipt Date: 20251107
  Transmission Date: 20260118
  Serious: No
  Sender: FDA-CTU
  Company Number: None

PATIENT
  Age: 35 Year
  Sex: Female

DRUGS (2)
  1. TADALAFIL [Suspect]
     Active Substance: TADALAFIL
     Indication: Pulmonary hypertension
     Dosage: FREQUENCY : DAILY;?
     Route: 048
     Dates: start: 20251014
  2. SILDENAFIL [Suspect]
     Active Substance: SILDENAFIL

REACTIONS (2)
  - Chest pain [None]
  - Product substitution issue [None]

NARRATIVE: CASE EVENT DATE: 20251020
